FAERS Safety Report 13795176 (Version 1)
Quarter: 2017Q3

REPORT INFORMATION
  Report Type: Spontaneous
  Country: GB (occurrence: GB)
  Receive Date: 20170726
  Receipt Date: 20170726
  Transmission Date: 20171127
  Serious: Yes (Hospitalization)
  Sender: FDA-Public Use
  Company Number: PHFR2017GB005842

PATIENT
  Age: 33 Year
  Sex: Female
  Weight: 63.5 kg

DRUGS (1)
  1. CLARITHROMYCIN. [Suspect]
     Active Substance: CLARITHROMYCIN
     Indication: BARTHOLIN^S ABSCESS
     Dosage: 500 MG, Q12H
     Route: 048
     Dates: start: 20170705

REACTIONS (3)
  - Confusional state [Recovered/Resolved with Sequelae]
  - Dysarthria [Recovered/Resolved with Sequelae]
  - Disorganised speech [Recovered/Resolved with Sequelae]

NARRATIVE: CASE EVENT DATE: 20170705
